FAERS Safety Report 6166813-3 (Version None)
Quarter: 2009Q2

REPORT INFORMATION
  Report Type: 
  Country: None (occurrence: None)
  Receive Date: 20090424
  Receipt Date: 20090415
  Transmission Date: 20091009
  Serious: Yes (Other)
  Sender: FDA-Public Use
  Company Number: US-ROCHE-613280

PATIENT
  Age: 78 Year
  Sex: Female

DRUGS (3)
  1. BONIVA [Suspect]
     Indication: OSTEOPOROSIS
     Dosage: DID NOT TAKE IN MAR 2009 AND APR 2009
     Route: 065
     Dates: start: 20060301
  2. OXYCONTIN [Concomitant]
  3. MUSCLE RELAXANT [Concomitant]
     Dosage: DRUG: MUSCLE RELAXER

REACTIONS (3)
  - MULTIPLE FRACTURES [None]
  - UPPER LIMB FRACTURE [None]
  - WRONG TECHNIQUE IN DRUG USAGE PROCESS [None]
